FAERS Safety Report 21517281 (Version 2)
Quarter: 2024Q4

REPORT INFORMATION
  Report Type: Spontaneous
  Country: JP (occurrence: JP)
  Receive Date: 20221028
  Receipt Date: 20241112
  Transmission Date: 20250115
  Serious: Yes (Death, Other)
  Sender: AUROBINDO
  Company Number: US-AUROBINDO-AUR-APL-2022-044662

PATIENT
  Age: 76 Year
  Sex: Male

DRUGS (3)
  1. FOLOTYN [Suspect]
     Active Substance: PRALATREXATE
     Indication: Blastic plasmacytoid dendritic cell neoplasia
     Dosage: 30 MILLIGRAM/SQ. METER, EVERY WEEK
     Route: 042
  2. DEXAMETHASONE [Suspect]
     Active Substance: DEXAMETHASONE
     Indication: Palliative care
     Dosage: 5 MILLIGRAM
     Route: 065
  3. SOBUZOXANE [Suspect]
     Active Substance: SOBUZOXANE
     Indication: Palliative care
     Dosage: 400 MILLIGRAM, DAILY
     Route: 065

REACTIONS (2)
  - Disseminated intravascular coagulation [Fatal]
  - Febrile neutropenia [Unknown]
